FAERS Safety Report 14456950 (Version 2)
Quarter: 2019Q1

REPORT INFORMATION
  Report Type: Other
  Country: US (occurrence: US)
  Receive Date: 20180130
  Receipt Date: 20190126
  Transmission Date: 20190417
  Serious: No
  Sender: FDA-Public Use
  Company Number: US-ACORDA-ACO_141349_2017

PATIENT
  Age: 73 Year
  Sex: Female

DRUGS (2)
  1. AMPYRA [Suspect]
     Active Substance: DALFAMPRIDINE
     Indication: GAIT DISTURBANCE
  2. AMPYRA [Suspect]
     Active Substance: DALFAMPRIDINE
     Indication: MULTIPLE SCLEROSIS
     Dosage: 10 MG QD
     Route: 048
     Dates: start: 20170817

REACTIONS (4)
  - Renal impairment [Unknown]
  - Abdominal discomfort [Recovered/Resolved]
  - Tremor [Recovered/Resolved with Sequelae]
  - Heart rate decreased [Recovered/Resolved with Sequelae]

NARRATIVE: CASE EVENT DATE: 20170819
